FAERS Safety Report 21397336 (Version 1)
Quarter: 2022Q3

REPORT INFORMATION
  Report Type: Report from Study
  Country: US (occurrence: US)
  Receive Date: 20220930
  Receipt Date: 20220930
  Transmission Date: 20221027
  Serious: No
  Sender: FDA-Public Use
  Company Number: US-ABBVIE-4132673

PATIENT
  Age: 59 Year
  Sex: Female

DRUGS (1)
  1. SKYRIZI [Suspect]
     Active Substance: RISANKIZUMAB-RZAA
     Indication: Psoriasis
     Dosage: WEEK 0
     Route: 058
     Dates: start: 20220912, end: 20220912

REACTIONS (11)
  - Fatigue [Recovered/Resolved]
  - Back pain [Unknown]
  - Arthropathy [Unknown]
  - Pain [Unknown]
  - Back disorder [Unknown]
  - Loss of personal independence in daily activities [Unknown]
  - Erythema [Unknown]
  - Pruritus [Unknown]
  - Arthritis [Unknown]
  - Pain in extremity [Unknown]
  - Bone disorder [Unknown]

NARRATIVE: CASE EVENT DATE: 20220901
